FAERS Safety Report 7010732-7 (Version None)
Quarter: 2010Q3

REPORT INFORMATION
  Report Type: 
  Country: None (occurrence: None)
  Receive Date: 20100923
  Receipt Date: 20100916
  Transmission Date: 20110219
  Serious: Yes (Hospitalization)
  Sender: FDA-Public Use
  Company Number: US-AMGEN-QUU438845

PATIENT
  Sex: Female

DRUGS (3)
  1. NEUPOGEN [Suspect]
     Indication: CHEMOTHERAPY
  2. NEULASTA [Suspect]
     Indication: CHEMOTHERAPY
     Route: 065
  3. UNSPECIFIED ANTINEOPLASTIC AGENT [Concomitant]

REACTIONS (4)
  - APPARENT DEATH [None]
  - BALANCE DISORDER [None]
  - MEMORY IMPAIRMENT [None]
  - PAIN [None]
